FAERS Safety Report 8353522-5 (Version None)
Quarter: 2012Q2

REPORT INFORMATION
  Report Type: 
  Country: None (occurrence: None)
  Receive Date: 20120511
  Receipt Date: 20110510
  Transmission Date: 20120825
  Serious: No
  Sender: FDA-Public Use
  Company Number: US-GLAXOSMITHKLINE-A0926793A

PATIENT
  Age: 71 Year
  Sex: Female

DRUGS (3)
  1. AROMASIN [Concomitant]
  2. TYKERB [Suspect]
     Indication: BREAST CANCER METASTATIC
     Dosage: 1000MG PER DAY
     Route: 048
     Dates: start: 20100401
  3. ABRAXANE [Suspect]

REACTIONS (1)
  - PARAESTHESIA [None]
